FAERS Safety Report 4881940-6 (Version None)
Quarter: 2006Q1

REPORT INFORMATION
  Report Type: 
  Country: None (occurrence: None)
  Receive Date: 20060112
  Receipt Date: 20051229
  Transmission Date: 20060701
  Serious: Yes (Death)
  Sender: FDA-Public Use
  Company Number: 2005S1012222

PATIENT
  Age: 53 Year
  Sex: Male

DRUGS (1)
  1. CLOZAPINE [Suspect]
     Dosage: 400 MG;QD;ORAL
     Route: 048

REACTIONS (1)
  - DEATH [None]
